FAERS Safety Report 9379759 (Version 2)
Quarter: 2015Q2

REPORT INFORMATION
  Report Type: Spontaneous
  Country: PL (occurrence: PL)
  Receive Date: 20130702
  Receipt Date: 20150506
  Transmission Date: 20150821
  Serious: Yes (Hospitalization)
  Sender: FDA-Public Use
  Company Number: PHHY2013PL065706

PATIENT
  Sex: Female

DRUGS (6)
  1. FLUDROCORTISONE [Concomitant]
     Active Substance: FLUDROCORTISONE
     Indication: MINERALOCORTICOID DEFICIENCY
     Dosage: 50 UG, QD
     Route: 065
  2. ATENOLOL. [Suspect]
     Active Substance: ATENOLOL
     Indication: SUPRAVENTRICULAR EXTRASYSTOLES
     Dosage: 25 MG, BID
     Route: 065
  3. IBUPROFEN. [Suspect]
     Active Substance: IBUPROFEN
     Indication: JOINT INJURY
     Dosage: 1.2 G, QD
     Route: 065
  4. ATENOLOL. [Suspect]
     Active Substance: ATENOLOL
     Dosage: 100 MG, QD
     Route: 065
  5. FLUDROCORTISONE [Concomitant]
     Active Substance: FLUDROCORTISONE
     Dosage: 100 UG, Q6H
     Route: 065
  6. FLUDROCORTISONE [Concomitant]
     Active Substance: FLUDROCORTISONE
     Dosage: 200 UG, Q6H
     Route: 065

REACTIONS (12)
  - Hypotension [Recovered/Resolved]
  - Paraesthesia [Recovered/Resolved]
  - Paraesthesia oral [Recovered/Resolved]
  - Hypotonia [Recovered/Resolved]
  - Electrocardiogram T wave peaked [Recovered/Resolved]
  - Muscle spasms [Recovered/Resolved]
  - Body temperature increased [Recovered/Resolved]
  - Hypoaldosteronism [Recovered/Resolved]
  - Hyperkalaemia [Recovering/Resolving]
  - Hyponatraemia [Recovered/Resolved]
  - Electrocardiogram QT shortened [Recovered/Resolved]
  - Bradycardia [Recovered/Resolved]
